FAERS Safety Report 7562815-0 (Version None)
Quarter: 2011Q2

REPORT INFORMATION
  Report Type: 
  Country: None (occurrence: None)
  Receive Date: 20110622
  Receipt Date: 20110617
  Transmission Date: 20111010
  Serious: Yes (Hospitalization, Other)
  Sender: FDA-Public Use
  Company Number: CZ-ROCHE-560004

PATIENT
  Sex: Female

DRUGS (7)
  1. TAMOXIFEN CITRATE [Concomitant]
  2. TRASTUZUMAB [Suspect]
     Indication: BREAST CANCER
     Dosage: LOADING DOSE
     Route: 042
     Dates: start: 20071025, end: 20071025
  3. THYREOTOM [Concomitant]
     Dates: start: 20050101
  4. TRASTUZUMAB [Suspect]
     Route: 042
     Dates: end: 20080320
  5. SPIRAPRIL HYDROCHLORIDE [Concomitant]
     Dates: start: 20080409
  6. METOPROLOL TARTRATE [Concomitant]
     Dates: start: 20080408
  7. HYDROCHLOROTHIAZIDE [Concomitant]
     Dates: start: 20080408

REACTIONS (2)
  - CARDIAC FAILURE CONGESTIVE [None]
  - ALANINE AMINOTRANSFERASE INCREASED [None]
